FAERS Safety Report 8602996-0 (Version None)
Quarter: 2012Q3

REPORT INFORMATION
  Report Type: 
  Country: None (occurrence: None)
  Receive Date: 20120817
  Receipt Date: 20120428
  Transmission Date: 20120928
  Serious: No
  Sender: FDA-Public Use
  Company Number: US-GLAXOSMITHKLINE-A0976450A

PATIENT
  Age: 71 Year
  Sex: Female
  Weight: 68 kg

DRUGS (8)
  1. LISINOPRIL [Concomitant]
  2. VOTRIENT [Suspect]
     Indication: RENAL CANCER
     Dosage: 800MG PER DAY
     Route: 048
     Dates: start: 20120411, end: 20120426
  3. LEVETIRACETAM [Concomitant]
  4. LAMOTRIGINE [Concomitant]
  5. FLUDROCORTISONE ACETATE [Concomitant]
  6. LABETALOL HCL [Concomitant]
  7. SYNTHROID [Concomitant]
  8. HYDROCORTISONE [Concomitant]

REACTIONS (4)
  - NAUSEA [None]
  - FATIGUE [None]
  - MALAISE [None]
  - DIZZINESS [None]
